FAERS Safety Report 21343035 (Version 4)
Quarter: 2022Q4

REPORT INFORMATION
  Report Type: Spontaneous
  Country: US (occurrence: US)
  Receive Date: 20220916
  Receipt Date: 20221221
  Transmission Date: 20230113
  Serious: Yes (Other)
  Sender: FDA-Public Use
  Company Number: US-PFIZER INC-PV202200064001

PATIENT
  Age: 50 Year
  Sex: Female
  Weight: 108.84 kg

DRUGS (25)
  1. PAXLOVID [Suspect]
     Active Substance: NIRMATRELVIR\RITONAVIR
     Indication: COVID-19 treatment
     Dosage: AS DIRECTED ON BOX ANY DOSING, PER DOSING
     Route: 048
     Dates: start: 20220906, end: 20220910
  2. PREDNISONE [Concomitant]
     Active Substance: PREDNISONE
     Indication: Bronchitis
     Dosage: 40 MG, DAILY (DAILY FOR 5 DAYS)
     Dates: start: 20220905, end: 20220909
  3. PREDNISONE [Concomitant]
     Active Substance: PREDNISONE
     Dosage: 50 MG (FOR ABOUT ANOTHER 5 DAYS)
  4. PREDNISONE [Concomitant]
     Active Substance: PREDNISONE
     Dosage: 40 MG, 1X/DAY (TAKE 2 TABLETS (40 MG) BY MOUTH IN THE MORNING FOR 5 DAYS)
     Route: 048
     Dates: start: 20220912, end: 20220917
  5. SYNTHROID [Concomitant]
     Active Substance: LEVOTHYROXINE SODIUM
     Indication: Thyroid disorder
     Dosage: UNK
     Dates: start: 20010314
  6. SYNTHROID [Concomitant]
     Active Substance: LEVOTHYROXINE SODIUM
     Dosage: 125 UG, DAILY
     Route: 048
     Dates: start: 20220726
  7. CHOLECALCIFEROL [Concomitant]
     Active Substance: CHOLECALCIFEROL
     Dosage: 5000 IU, DAILY
     Dates: start: 20180525
  8. VYVANSE [Concomitant]
     Active Substance: LISDEXAMFETAMINE DIMESYLATE
     Dosage: UNK(STOPPED TAKUNG WHILE SICK WITH COVID)
     Dates: start: 20220401
  9. VYVANSE [Concomitant]
     Active Substance: LISDEXAMFETAMINE DIMESYLATE
     Dosage: 50 MG, DAILY
     Route: 048
     Dates: start: 20220831
  10. METFORMIN [Concomitant]
     Active Substance: METFORMIN HYDROCHLORIDE
     Dosage: 1000 MG, DAILY( STOPPED TAKING WHILE SICK WITH COVID)
     Dates: start: 20220225
  11. METFORMIN [Concomitant]
     Active Substance: METFORMIN HYDROCHLORIDE
     Dosage: 1000 MG, 1X/DAY (TAKE 1,000 MG BY MOUTH IN THE MORNING
     Route: 048
     Dates: start: 20220726
  12. METFORMIN [Concomitant]
     Active Substance: METFORMIN HYDROCHLORIDE
     Dosage: 500 MG, DAILY (TAKE 500 MG BY MOUTH DAILY (WITH BREAKFAST)
     Route: 048
  13. CYTOMEL [Concomitant]
     Active Substance: LIOTHYRONINE SODIUM
     Dosage: UNK
     Dates: start: 20200611
  14. LIOTHYRONINE [Concomitant]
     Active Substance: LIOTHYRONINE
     Dosage: 5 MG, DAILY
     Dates: start: 2020
  15. LIOTHYRONINE [Concomitant]
     Active Substance: LIOTHYRONINE
     Dosage: 5 UG, DAILY (TAKE 1 TABLET BY MOUTH EVERY DAY)
     Route: 048
     Dates: start: 20220825
  16. PEPCID [Concomitant]
     Active Substance: FAMOTIDINE
     Dosage: AT BEDTIME/TAKE 1 TABLET (20 MG) BY MOUTH IN THE MORNING AND 1 TABLET (20 MG) BEFORE BEDTIME
  17. BENADRYL [Concomitant]
     Active Substance: DIPHENHYDRAMINE HYDROCHLORIDE
     Dosage: 25 MG, 4X/DAY (EVERY 6HOURS)
  18. OFLOXACIN [Concomitant]
     Active Substance: OFLOXACIN
     Dosage: UNK (EVERY 2 HOURS X 24 HOURS, FOLLOWED BY 4 TIMES DAILY.)
     Dates: end: 20220915
  19. MUPIROCIN [Concomitant]
     Active Substance: MUPIROCIN
     Dosage: 2 %, DAILY (APPLY TO NASAL CAVITY TWICE DAILY)
     Route: 045
     Dates: start: 20220831
  20. BUDESONIDE [Concomitant]
     Active Substance: BUDESONIDE
     Dosage: 0.25 MG/ML, 2X/DAY (PLACE THE CONTENTS OF 1 AMPULE INTO SALINE SINUS RINSE, BID)
     Dates: start: 20220801
  21. ALPRAZOLAM [Concomitant]
     Active Substance: ALPRAZOLAM
     Dosage: 0.5 MG, AS NEEDED (TAKE 1 TABLET BY MOUTH NIGHTLY AS NEEDED FOR SLEEP OR ANXIETY)
     Route: 048
     Dates: start: 20220512
  22. LIDOCAINE [Concomitant]
     Active Substance: LIDOCAINE
     Indication: Pain
     Dosage: 15 ML, AS NEEDED
     Route: 048
  23. DIPHENHYDRAMINE [Concomitant]
     Active Substance: DIPHENHYDRAMINE
     Dosage: 25 MG, 4X/DAY (TAKE 1 CAPSULE (25 MG) BY MOUTH EVERY 6 (SIX) HOURS IF NEEDED FOR UP TO 1 0 DAYS)
     Route: 048
  24. EPINEPHRINE [Concomitant]
     Active Substance: EPINEPHRINE
     Dosage: 0.3 ML, AS NEEDED (INJECT 0.3 MLS (0.3 MG) INTO THE MUSCLE IF NEEDED (ANAPHYLAXIS)
  25. LISDEXAMFETAMINE DIMESYLATE [Concomitant]
     Active Substance: LISDEXAMFETAMINE DIMESYLATE
     Dosage: 50 MG, DAILY (TAKE 50 MG BY MOUTH DAILY)
     Route: 048

REACTIONS (17)
  - Pneumonia [Unknown]
  - Pulmonary pain [Recovering/Resolving]
  - Oral mucosal blistering [Unknown]
  - Stomatitis [Unknown]
  - Eye pruritus [Unknown]
  - Eye irritation [Unknown]
  - Eye discharge [Unknown]
  - Foreign body sensation in eyes [Unknown]
  - Conjunctivitis [Unknown]
  - Hypersensitivity [Unknown]
  - Urticaria [Recovered/Resolved]
  - Swelling face [Recovered/Resolved]
  - Facial pain [Recovered/Resolved]
  - Oral discomfort [Recovered/Resolved]
  - Oral pain [Recovered/Resolved]
  - COVID-19 [Recovered/Resolved]
  - Disease recurrence [Recovered/Resolved]

NARRATIVE: CASE EVENT DATE: 20220911
